FAERS Safety Report 18054852 (Version 1)
Quarter: 2020Q3

REPORT INFORMATION
  Report Type: Spontaneous
  Country: US (occurrence: US)
  Receive Date: 20200722
  Receipt Date: 20200722
  Transmission Date: 20201103
  Serious: No
  Sender: FDA-Public Use
  Company Number: None

PATIENT
  Age: 66 Year
  Sex: Male
  Weight: 141.7 kg

DRUGS (17)
  1. REMDESIVIR. [Suspect]
     Active Substance: REMDESIVIR
     Indication: COVID-19
     Route: 042
     Dates: start: 20200718, end: 20200720
  2. AZITHROMYCIN ANHYDROUS. [Concomitant]
     Active Substance: AZITHROMYCIN ANHYDROUS
     Dates: start: 20200714, end: 20200718
  3. KETAMINE DRIP [Concomitant]
     Dates: start: 20200715, end: 20200718
  4. RIVAROXABAN [Concomitant]
     Active Substance: RIVAROXABAN
     Dates: start: 20200717, end: 20200719
  5. DILTIAZEM DRIP [Concomitant]
     Dates: start: 20200719, end: 20200721
  6. ENOXAPARIN [Concomitant]
     Active Substance: ENOXAPARIN
     Dates: start: 20200720
  7. EPOPROSTENOL NEB [Concomitant]
     Dates: start: 20200715
  8. PANTOPRAZOLE INJ [Concomitant]
     Dates: start: 20200715
  9. AMIODARONE DRIP [Concomitant]
     Dates: start: 20200719, end: 20200720
  10. MIDAZOLAM DRIP [Concomitant]
     Dates: start: 20200717
  11. PIPERACILLIN?TAZOBACTAM IVPB [Concomitant]
     Dates: start: 20200714, end: 20200720
  12. TOCILIZUMAB. [Concomitant]
     Active Substance: TOCILIZUMAB
     Dates: start: 20200715, end: 20200715
  13. CISATRACURIUM DRIP [Concomitant]
     Dates: start: 20200719, end: 20200721
  14. ATORVASTATIN [Concomitant]
     Active Substance: ATORVASTATIN
     Dates: start: 20200422, end: 20200721
  15. METHYLPREDNISOLONE SOD SUCC INJ [Concomitant]
     Dates: start: 20200715
  16. LORAZEPAM INJ [Concomitant]
     Dates: start: 20200715, end: 20200719
  17. NOREPINEPHRINE DRIP [Concomitant]
     Dates: start: 20200715, end: 20200721

REACTIONS (3)
  - Blood alkaline phosphatase increased [None]
  - Blood bilirubin increased [None]
  - Alanine aminotransferase increased [None]

NARRATIVE: CASE EVENT DATE: 20200719
